FAERS Safety Report 4673816-4 (Version None)
Quarter: 2005Q2

REPORT INFORMATION
  Report Type: 
  Country: None (occurrence: None)
  Receive Date: 20050523
  Receipt Date: 20040727
  Transmission Date: 20051028
  Serious: Yes (Other)
  Sender: FDA-Public Use
  Company Number: 10058895-C613448-01

PATIENT
  Age: 66 Year
  Sex: Female

DRUGS (3)
  1. LACTATED RINGER'S [Suspect]
     Indication: COLONOSCOPY
     Dosage: 100ML/HR, CONTINUOUS, IV
     Route: 042
     Dates: start: 20040712
  2. FLO-GARD INFUSION PUMP AND INTERLINK CONTINU-FLO ADMINISTRATION SET [Concomitant]
  3. 18 GAUGE CATHETER [Concomitant]

REACTIONS (1)
  - URTICARIA [None]
